FAERS Safety Report 5688276-4 (Version None)
Quarter: 2008Q1

REPORT INFORMATION
  Report Type: 
  Country: None (occurrence: None)
  Receive Date: 20080331
  Receipt Date: 20080318
  Transmission Date: 20080703
  Serious: Yes (Other)
  Sender: FDA-Public Use
  Company Number: NL-JNJFOC-20080306514

PATIENT
  Age: 11 Year
  Sex: Female

DRUGS (2)
  1. TOPIRAMATE [Suspect]
     Indication: HEMIPLEGIA
  2. LAMOTRIGINE [Suspect]
     Indication: HEMIPLEGIA

REACTIONS (3)
  - ABNORMAL BEHAVIOUR [None]
  - ANOREXIA [None]
  - HEMIPLEGIA [None]
